FAERS Safety Report 4719882-9 (Version None)
Quarter: 2005Q3

REPORT INFORMATION
  Report Type: 
  Country: None (occurrence: None)
  Receive Date: 20050721
  Receipt Date: 20041227
  Transmission Date: 20060218
  Serious: No
  Sender: FDA-Public Use
  Company Number: US-GLAXOSMITHKLINE-A0538541A

PATIENT
  Sex: Female

DRUGS (4)
  1. AVANDIA [Suspect]
     Dosage: 4MG PER DAY
     Route: 048
     Dates: start: 20040817
  2. GLUCOPHAGE [Concomitant]
  3. GLUCOTROL [Concomitant]
  4. IRON [Concomitant]

REACTIONS (3)
  - AGITATION [None]
  - BLOOD GLUCOSE INCREASED [None]
  - HUNGER [None]
